FAERS Safety Report 14803889 (Version 1)
Quarter: 2018Q2

REPORT INFORMATION
  Report Type: Spontaneous
  Country: DE (occurrence: DE)
  Receive Date: 20180425
  Receipt Date: 20180425
  Transmission Date: 20180711
  Serious: Yes (Other)
  Sender: FDA-Public Use
  Company Number: DE-AUROBINDO-AUR-APL-2018-021565

PATIENT
  Age: 63 Year
  Sex: Female
  Weight: 85 kg

DRUGS (9)
  1. RAMIPRIL. [Concomitant]
     Active Substance: RAMIPRIL
     Dosage: 10 MG, 0.5-0-0.5-0 ()
     Route: 048
  2. FLECAINIDE [Suspect]
     Active Substance: FLECAINIDE
     Dosage: 50 MG, 1-0-1-0 ()
     Route: 048
  3. OMEPRAZOL                          /00661201/ [Concomitant]
     Active Substance: OMEPRAZOLE
     Indication: PRODUCT USED FOR UNKNOWN INDICATION
     Dosage: 20 MG, 1-0-1-0 ()
     Route: 048
  4. SIMVASTATIN. [Concomitant]
     Active Substance: SIMVASTATIN
     Indication: PRODUCT USED FOR UNKNOWN INDICATION
     Dosage: 10 MG, 0-0-1-0 ()
     Route: 048
  5. LEVOTHYROXIN [Concomitant]
     Active Substance: LEVOTHYROXINE
     Indication: PRODUCT USED FOR UNKNOWN INDICATION
     Dosage: 50 ?G, 1-0-0-0
     Route: 048
  6. PHENPROCOUMON [Concomitant]
     Active Substance: PHENPROCOUMON
     Indication: PRODUCT USED FOR UNKNOWN INDICATION
     Dosage: NACH INR ()
     Route: 065
  7. RAMIPRIL. [Concomitant]
     Active Substance: RAMIPRIL
     Dosage: 5|2.5 MG, 1-0-0-0 ()
     Route: 048
  8. NALOXON [Concomitant]
     Active Substance: NALOXONE HYDROCHLORIDE
     Indication: PRODUCT USED FOR UNKNOWN INDICATION
     Dosage: 10|5 MG, 1-0-0-0 ()
     Route: 048
  9. NALOXON [Concomitant]
     Active Substance: NALOXONE HYDROCHLORIDE
     Dosage: 5|2.5 MG, 0-0-1-0 ()
     Route: 048

REACTIONS (1)
  - Atrial fibrillation [Unknown]

NARRATIVE: CASE EVENT DATE: 20151218
